FAERS Safety Report 8684518 (Version 2)
Quarter: 2012Q4

REPORT INFORMATION
  Report Type: 
  Country: US (occurrence: US)
  Receive Date: 20120726
  Receipt Date: 20121009
  Transmission Date: 20130627
  Serious: Yes (Other)
  Sender: FDA-Public Use
  Company Number: US-PFIZER INC-2012176293

PATIENT
  Age: 32 Year
  Sex: Female
  Weight: 63.49 kg

DRUGS (6)
  1. LYRICA [Suspect]
     Indication: PAIN
     Dosage: 300 mg, 3x/day
     Route: 048
     Dates: start: 2011, end: 2012
  2. LYRICA [Suspect]
     Dosage: 200 mg, 3x/day
     Route: 048
     Dates: start: 2012, end: 2012
  3. LYRICA [Suspect]
     Dosage: 100 mg, 3x/day
     Route: 048
     Dates: start: 2012, end: 20120717
  4. LORAZEPAM [Suspect]
     Indication: ANXIETY
     Dosage: 10 mg, 3x/day
  5. LORAZEPAM [Suspect]
     Indication: MUSCLE RELAXANT THERAPY
  6. LORTAB [Suspect]
     Indication: PAIN
     Dosage: UNK

REACTIONS (14)
  - Drug dependence [Unknown]
  - Dizziness [Unknown]
  - Euphoric mood [Unknown]
  - Aggression [Unknown]
  - Depression [Not Recovered/Not Resolved]
  - Asthenia [Not Recovered/Not Resolved]
  - Irritability [Not Recovered/Not Resolved]
  - Diarrhoea [Not Recovered/Not Resolved]
  - Nausea [Not Recovered/Not Resolved]
  - Insomnia [Not Recovered/Not Resolved]
  - Pain [Not Recovered/Not Resolved]
  - Anxiety [Not Recovered/Not Resolved]
  - Feeling abnormal [Unknown]
  - Drug administration error [Unknown]
